FAERS Safety Report 14870822 (Version 2)
Quarter: 2022Q2

REPORT INFORMATION
  Report Type: Spontaneous
  Country: GB (occurrence: GB)
  Receive Date: 20180509
  Receipt Date: 20220405
  Transmission Date: 20220721
  Serious: Yes (Hospitalization, Other)
  Sender: FDA-Public Use
  Company Number: GB-EMA-DD-20180418-PAGRAHARIP-142706

PATIENT
  Age: 50 Year
  Sex: Female

DRUGS (11)
  1. LETROZOLE [Suspect]
     Active Substance: LETROZOLE
     Indication: HER2 positive breast cancer
     Dosage: 2.5 MG,QD
     Route: 048
     Dates: start: 20151124
  2. DOCETAXEL [Suspect]
     Active Substance: DOCETAXEL
     Indication: HER2 positive breast cancer
     Dosage: 160 MG,Q3W
     Route: 042
     Dates: start: 20150722, end: 20151104
  3. PERTUZUMAB [Suspect]
     Active Substance: PERTUZUMAB
     Indication: HER2 positive breast cancer
     Dosage: 840 MG,1X
     Route: 042
     Dates: start: 20150722, end: 20150722
  4. PERTUZUMAB [Suspect]
     Active Substance: PERTUZUMAB
     Dosage: 420 MG,Q3D
     Route: 042
     Dates: start: 20150812
  5. TRASTUZUMAB [Suspect]
     Active Substance: TRASTUZUMAB
     Indication: HER2 positive breast cancer
     Dosage: 900 MG,1X
     Route: 042
     Dates: start: 20150722, end: 20150722
  6. TRASTUZUMAB [Suspect]
     Active Substance: TRASTUZUMAB
     Dosage: 675 MG,Q3W
     Route: 042
     Dates: start: 20150812
  7. DEXAMETHASONE [Concomitant]
     Active Substance: DEXAMETHASONE
     Indication: Prophylaxis
     Dosage: 2 MG,UNK
     Route: 048
     Dates: start: 20150806
  8. DEXAMETHASONE [Concomitant]
     Active Substance: DEXAMETHASONE
     Dosage: 2 MG,UNK
     Route: 048
     Dates: start: 20150901, end: 20150903
  9. NAPROXEN [Concomitant]
     Active Substance: NAPROXEN
     Dosage: UNK UNK,PRN
     Route: 048
  10. LOPERAMIDE [Concomitant]
     Active Substance: LOPERAMIDE
     Indication: Prophylaxis
     Dosage: 2 MG,PRN
     Route: 048
     Dates: start: 20150804
  11. BENDROFLUMETHIAZIDE [Concomitant]
     Active Substance: BENDROFLUMETHIAZIDE
     Dosage: 2.5 MG,UNK
     Route: 048

REACTIONS (21)
  - Cellulitis [Recovered/Resolved]
  - Neutropenic sepsis [Recovered/Resolved]
  - Ejection fraction decreased [Recovered/Resolved]
  - Myelosuppression [Recovered/Resolved]
  - Dysphagia [Not Recovered/Not Resolved]
  - Hypokalaemia [Recovered/Resolved]
  - Chest discomfort [Recovered/Resolved]
  - Neuropathy peripheral [Not Recovered/Not Resolved]
  - Laryngitis [Unknown]
  - Nail dystrophy [Recovered/Resolved]
  - Onychomadesis [Recovered/Resolved]
  - Dysgeusia [Recovered/Resolved]
  - Bronchitis [Recovered/Resolved]
  - Myalgia [Recovered/Resolved]
  - Fatigue [Recovered/Resolved]
  - Skin exfoliation [Not Recovered/Not Resolved]
  - Oedema peripheral [Recovered/Resolved]
  - Urinary tract infection [Unknown]
  - Dyspepsia [Recovered/Resolved]
  - Decreased appetite [Recovered/Resolved]
  - Erythema [Recovered/Resolved]

NARRATIVE: CASE EVENT DATE: 20150813
